FAERS Safety Report 21466608 (Version 5)
Quarter: 2022Q4

REPORT INFORMATION
  Report Type: Report from Study
  Country: BE (occurrence: BE)
  Receive Date: 20221017
  Receipt Date: 20221215
  Transmission Date: 20230113
  Serious: Yes (Hospitalization, Other)
  Sender: FDA-Public Use
  Company Number: BE-BRISTOL-MYERS SQUIBB COMPANY-2022-114111

PATIENT
  Age: 70 Year
  Sex: Male

DRUGS (2)
  1. OPDIVO [Suspect]
     Active Substance: NIVOLUMAB
     Indication: Malignant melanoma
     Dosage: ROA: GIVEN IN HOSPITAL
     Dates: start: 20220915
  2. YERVOY [Suspect]
     Active Substance: IPILIMUMAB
     Indication: Malignant melanoma
     Dosage: ROA: GIVEN IN HOSPITAL
     Dates: start: 20220915

REACTIONS (11)
  - Renal disorder [Unknown]
  - Cough [Unknown]
  - Fatigue [Recovering/Resolving]
  - Headache [Unknown]
  - Pneumonia [Unknown]
  - Hyperthermia [Unknown]
  - Rash pruritic [Recovering/Resolving]
  - Decreased appetite [Unknown]
  - Urinary tract disorder [Unknown]
  - Condition aggravated [Unknown]
  - Urethral stenosis [Unknown]

NARRATIVE: CASE EVENT DATE: 20220925
